FAERS Safety Report 6704184-1 (Version None)
Quarter: 2010Q2

REPORT INFORMATION
  Report Type: 
  Country: None (occurrence: None)
  Receive Date: 20100430
  Receipt Date: 20100421
  Transmission Date: 20101027
  Serious: Yes (Hospitalization)
  Sender: FDA-Public Use
  Company Number: US-JNJFOC-20100406280

PATIENT
  Sex: Male
  Weight: 122.47 kg

DRUGS (6)
  1. DURAGESIC-100 [Suspect]
     Indication: BACK PAIN
     Route: 062
  2. DURAGESIC-100 [Suspect]
     Route: 062
  3. OXYCONTIN [Concomitant]
     Indication: PAIN
     Route: 048
  4. OXYCONTIN [Concomitant]
     Route: 048
  5. XANAX [Concomitant]
     Indication: ANXIETY
     Route: 048
  6. PAMELOR [Concomitant]
     Indication: SLEEP DISORDER
     Dosage: 2 AT BEDTIME
     Route: 048

REACTIONS (2)
  - INADEQUATE ANALGESIA [None]
  - LOWER LIMB FRACTURE [None]
